FAERS Safety Report 14141934 (Version 1)
Quarter: 2017Q4

REPORT INFORMATION
  Report Type: Spontaneous
  Country: US (occurrence: US)
  Receive Date: 20171030
  Receipt Date: 20171030
  Transmission Date: 20180321
  Serious: Yes (Other)
  Sender: FDA-Public Use
  Company Number: US-PFIZER INC-2017463156

PATIENT
  Age: 7 Decade
  Sex: Male

DRUGS (2)
  1. MYLOTARG [Suspect]
     Active Substance: GEMTUZUMAB OZOGAMICIN
     Dosage: 2 MG/M2, UNK (ONE DOSE)
     Route: 042
  2. MYLOTARG [Suspect]
     Active Substance: GEMTUZUMAB OZOGAMICIN
     Indication: ACUTE MYELOID LEUKAEMIA
     Dosage: 3 MG/M2, UNK (ON DAYS 1,4, AND 7 FOR ONE CYCLE)
     Route: 042

REACTIONS (1)
  - Neutropenia [Recovered/Resolved]
